FAERS Safety Report 17210515 (Version 1)
Quarter: 2019Q4

REPORT INFORMATION
  Report Type: Spontaneous
  Country: US (occurrence: US)
  Receive Date: 20191227
  Receipt Date: 20191227
  Transmission Date: 20200122
  Serious: Yes (Other)
  Sender: FDA-Public Use
  Company Number: US-BAYER-2019-234113

PATIENT
  Age: 37 Year

DRUGS (1)
  1. KOGENATE FS [Suspect]
     Active Substance: ANTIHEMOPHILIC FACTOR, HUMAN RECOMBINANT
     Dosage: 4400 U
     Route: 042

REACTIONS (1)
  - Haemorrhagic cyst [Recovered/Resolved]

NARRATIVE: CASE EVENT DATE: 20191212
